FAERS Safety Report 15592768 (Version 1)
Quarter: 2018Q4

REPORT INFORMATION
  Report Type: Spontaneous
  Country: US (occurrence: US)
  Receive Date: 20181102
  Receipt Date: 20181102
  Transmission Date: 20190205
  Serious: Yes (Hospitalization, Other)
  Sender: FDA-Public Use
  Company Number: None

PATIENT
  Age: 62 Year
  Sex: Male
  Weight: 68.95 kg

DRUGS (1)
  1. YESCARTA [Suspect]
     Active Substance: AXICABTAGENE CILOLEUCEL
     Indication: DIFFUSE LARGE B-CELL LYMPHOMA
     Dosage: 2X10^6 KG MAX 2X10; ONCE; IV?
     Route: 042
     Dates: start: 20181004

REACTIONS (9)
  - Cytokine release syndrome [None]
  - Staphylococcal bacteraemia [None]
  - Ophthalmological examination abnormal [None]
  - Pancytopenia [None]
  - Neurotoxicity [None]
  - Skin candida [None]
  - Candida infection [None]
  - Fungaemia [None]
  - Biopsy skin abnormal [None]

NARRATIVE: CASE EVENT DATE: 20181004
